FAERS Safety Report 15303094 (Version 1)
Quarter: 2018Q3

REPORT INFORMATION
  Report Type: Spontaneous
  Country: US (occurrence: US)
  Receive Date: 20180821
  Receipt Date: 20180821
  Transmission Date: 20181010
  Serious: No
  Sender: FDA-Public Use
  Company Number: US-AMGEN INC.-USASP2018076736

PATIENT
  Age: 39 Year
  Sex: Female

DRUGS (1)
  1. AIMOVIG [Suspect]
     Active Substance: ERENUMAB-AOOE
     Indication: MIGRAINE
     Dosage: 140 MG, QMO, RECEIVED ONLY HALF OF HER PRESCRIBED DOSE
     Route: 065
     Dates: start: 20180605

REACTIONS (2)
  - Drug dose omission [Unknown]
  - Drug administration error [Unknown]

NARRATIVE: CASE EVENT DATE: 20180605
